FAERS Safety Report 7896272-1 (Version None)
Quarter: 2011Q4

REPORT INFORMATION
  Report Type: 
  Country: None (occurrence: None)
  Receive Date: 20111104
  Receipt Date: 20111104
  Transmission Date: 20120403
  Serious: Yes (Other)
  Sender: FDA-Public Use
  Company Number: None

PATIENT
  Age: 67 Year
  Sex: Female

DRUGS (1)
  1. LISTERINE ANTIBACTERIAL (ORAL CARE PRODUCT LIQUID) [Suspect]
     Indication: PRODUCT USED FOR UNKNOWN INDICATION

REACTIONS (5)
  - MOUTH ULCERATION [None]
  - GLOSSITIS [None]
  - THERMAL BURN [None]
  - GLOSSODYNIA [None]
  - APPLICATION SITE BURN [None]
